FAERS Safety Report 11917442 (Version 1)
Quarter: 2016Q1

REPORT INFORMATION
  Report Type: Spontaneous
  Country: US (occurrence: US)
  Receive Date: 20160114
  Receipt Date: 20160114
  Transmission Date: 20160526
  Serious: No
  Sender: FDA-Public Use
  Company Number: US-MEDA-2015020061

PATIENT
  Age: 72 Year
  Sex: Male

DRUGS (3)
  1. MUSE [Suspect]
     Active Substance: ALPROSTADIL
     Route: 066
  2. ATENOLOL. [Concomitant]
     Active Substance: ATENOLOL
     Indication: HYPERTENSION
     Route: 048
  3. FLOMAX [Concomitant]
     Active Substance: TAMSULOSIN HYDROCHLORIDE
     Indication: PROSTATOMEGALY
     Route: 048

REACTIONS (1)
  - Penile pain [Recovered/Resolved]
